FAERS Safety Report 25784559 (Version 1)
Quarter: 2025Q3

REPORT INFORMATION
  Report Type: Spontaneous
  Country: US (occurrence: US)
  Receive Date: 20250910
  Receipt Date: 20250910
  Transmission Date: 20251021
  Serious: No
  Sender: TEVA
  Company Number: US-TEVA-VS-3368913

PATIENT
  Age: 35 Year
  Sex: Female

DRUGS (1)
  1. AJOVY [Suspect]
     Active Substance: FREMANEZUMAB-VFRM
     Indication: Migraine
     Dosage: 225 MG/1.5 ML
     Route: 065
     Dates: start: 2025

REACTIONS (12)
  - Injection site erythema [Unknown]
  - Injection site reaction [Unknown]
  - Injection site swelling [Unknown]
  - Injection site warmth [Unknown]
  - Injection site pruritus [Unknown]
  - Injection site bruising [Not Recovered/Not Resolved]
  - Device malfunction [Unknown]
  - Incorrect dose administered by device [Unknown]
  - Device audio issue [Unknown]
  - Injection site induration [Unknown]
  - Injection site discolouration [Not Recovered/Not Resolved]
  - Accidental exposure to product [Unknown]

NARRATIVE: CASE EVENT DATE: 20250101
